FAERS Safety Report 9627135 (Version 1)
Quarter: 2013Q4

REPORT INFORMATION
  Report Type: Spontaneous
  Country: ES (occurrence: ES)
  Receive Date: 20131016
  Receipt Date: 20131016
  Transmission Date: 20140711
  Serious: Yes (Other)
  Sender: FDA-Public Use
  Company Number: ES-BRISTOL-MYERS SQUIBB COMPANY-19513522

PATIENT
  Age: 60 Year
  Sex: Female

DRUGS (1)
  1. SPRYCEL [Suspect]
     Dosage: REINITIATED WITH 50MG

REACTIONS (2)
  - Pleural effusion [Unknown]
  - Diabetes mellitus [Unknown]
